FAERS Safety Report 15916034 (Version 1)
Quarter: 2019Q1

REPORT INFORMATION
  Report Type: Spontaneous
  Country: US (occurrence: US)
  Receive Date: 20190114
  Receipt Date: 20190114
  Transmission Date: 20190417
  Serious: Yes (Hospitalization)
  Sender: FDA-Public Use
  Company Number: None

PATIENT
  Age: 64 Year
  Sex: Female

DRUGS (18)
  1. ESCITALOPRAM [Concomitant]
     Active Substance: ESCITALOPRAM OXALATE
  2. JANUVIA [Concomitant]
     Active Substance: SITAGLIPTIN PHOSPHATE
  3. ENTRESTO [Concomitant]
     Active Substance: SACUBITRIL\VALSARTAN
  4. LISINOPRIL. [Concomitant]
     Active Substance: LISINOPRIL
  5. TUDORZA [Concomitant]
     Active Substance: ACLIDINIUM BROMIDE
  6. SILDENAFIL. [Suspect]
     Active Substance: SILDENAFIL
     Indication: PULMONARY HYPERTENSION
     Dosage: ?          OTHER FREQUENCY:3X /DAY;?
     Route: 048
  7. SPIRONOLACTONE. [Concomitant]
     Active Substance: SPIRONOLACTONE
  8. COUMADIN [Concomitant]
     Active Substance: WARFARIN SODIUM
  9. TORSEMIDE. [Concomitant]
     Active Substance: TORSEMIDE
  10. MEXILETINE [Concomitant]
     Active Substance: MEXILETINE
  11. COMBIVENT [Concomitant]
     Active Substance: ALBUTEROL SULFATE\IPRATROPIUM BROMIDE
  12. METOPROLOL. [Concomitant]
     Active Substance: METOPROLOL
  13. LEVOTHYROXINE. [Concomitant]
     Active Substance: LEVOTHYROXINE
  14. OXYBUTININ [Concomitant]
     Active Substance: OXYBUTYNIN
  15. MULTIVITAMIN [Concomitant]
     Active Substance: VITAMINS
  16. ASPIRIN. [Concomitant]
     Active Substance: ASPIRIN
  17. ATORVASTATIN [Concomitant]
     Active Substance: ATORVASTATIN
  18. OMEPRAZOLE. [Concomitant]
     Active Substance: OMEPRAZOLE

REACTIONS (1)
  - Fluid overload [None]

NARRATIVE: CASE EVENT DATE: 20181210
